FAERS Safety Report 4832737-4 (Version None)
Quarter: 2005Q4

REPORT INFORMATION
  Report Type: 
  Country: None (occurrence: None)
  Receive Date: 20051117
  Receipt Date: 20051117
  Transmission Date: 20060501
  Serious: No
  Sender: FDA-Public Use
  Company Number: None

PATIENT
  Age: 48 Year
  Sex: Male
  Weight: 99.7913 kg

DRUGS (1)
  1. ZICAM NASAL GEL     MATTRIXX INITIATIVES, INC [Suspect]
     Indication: NASOPHARYNGITIS
     Dates: start: 20050601, end: 20050605

REACTIONS (4)
  - AGEUSIA [None]
  - ANOSMIA [None]
  - BURNING SENSATION [None]
  - SNEEZING [None]
